FAERS Safety Report 4267354-0 (Version None)
Quarter: 2004Q1

REPORT INFORMATION
  Report Type: 
  Country: None (occurrence: None)
  Receive Date: 20040107
  Receipt Date: 20031118
  Transmission Date: 20041129
  Serious: Yes (Death)
  Sender: FDA-Public Use
  Company Number: MEDI-0001152

PATIENT
  Age: 3 Month
  Sex: Male

DRUGS (7)
  1. SYNAGIS [Suspect]
     Indication: ANTIVIRAL PROPHYLAXIS
     Dosage: 90 MG, 1 IN 30 D, INTRA-MUSCULAR
     Route: 030
     Dates: start: 20031031, end: 20031031
  2. TULOBUTEROL (TULOBUTEROL) [Concomitant]
  3. TIPEPIDINE  HIBENZATE (TIPEPIDINE HIBENZATE) [Concomitant]
  4. L-CARBOCISTEINE [Concomitant]
  5. CYPROHEPTADINE HYDROCHLORIDE(CYPROHEPATADINE HYDROCHLORIDE) [Concomitant]
  6. CAFOAPENE PIVOXLL HYDROCHLORIDE [Concomitant]
  7. THEOPHYLLINE [Concomitant]

REACTIONS (2)
  - CARDIO-RESPIRATORY ARREST [None]
  - SUDDEN INFANT DEATH SYNDROME [None]
